FAERS Safety Report 9240528 (Version 1)
Quarter: 2013Q1

REPORT INFORMATION
  Report Type: Spontaneous
  Country: US (occurrence: None)
  Receive Date: 20121120
  Receipt Date: 20121120
  Transmission Date: 20140127
  Serious: No
  Sender: FDA-Public Use
  Company Number: 1000039286

PATIENT
  Age: 46 Year
  Sex: Female

DRUGS (10)
  1. VIIBRYD [Suspect]
     Indication: DEPRESSION
     Route: 048
     Dates: start: 2012, end: 2012
  2. VIIBRYD [Suspect]
     Indication: ANXIETY
     Route: 048
     Dates: start: 2012, end: 2012
  3. VIIBRYD [Suspect]
     Route: 048
     Dates: start: 2012, end: 2012
  4. VIIBRYD [Suspect]
     Indication: DEPRESSION
     Route: 048
     Dates: start: 2012, end: 2012
  5. VIIBRYD [Suspect]
     Indication: ANXIETY
     Route: 048
     Dates: start: 2012, end: 2012
  6. VIIBRYD [Suspect]
     Route: 048
     Dates: start: 2012, end: 2012
  7. VIIBRYD [Suspect]
     Indication: DEPRESSION
     Dates: start: 20121008
  8. VIIBRYD [Suspect]
     Indication: ANXIETY
     Dates: start: 20121008
  9. VIIBRYD [Suspect]
     Dates: start: 20121008
  10. BUSPAR (BUSPIRONE HYDROCHLORIDE) (BUSPIRONE HYDROCHLORIDE) [Concomitant]

REACTIONS (1)
  - Pain in extremity [None]
